FAERS Safety Report 20574008 (Version 1)
Quarter: 2022Q1

REPORT INFORMATION
  Report Type: Spontaneous
  Country: US (occurrence: US)
  Receive Date: 20220309
  Receipt Date: 20220309
  Transmission Date: 20220424
  Serious: No
  Sender: FDA-Public Use
  Company Number: US-PFIZER INC-202100932470

PATIENT
  Age: 42 Year
  Sex: Female

DRUGS (1)
  1. XELJANZ [Suspect]
     Active Substance: TOFACITINIB CITRATE
     Dosage: UNK

REACTIONS (10)
  - Therapeutic product effect incomplete [Unknown]
  - Intentional product misuse [Unknown]
  - Off label use [Unknown]
  - Drug effective for unapproved indication [Unknown]
  - Photosensitivity reaction [Unknown]
  - Dry eye [Unknown]
  - Mucosal disorder [Unknown]
  - Thermal burn [Unknown]
  - Autonomic nervous system imbalance [Unknown]
  - Dyspnoea [Unknown]
